FAERS Safety Report 7048417-3 (Version None)
Quarter: 2010Q4

REPORT INFORMATION
  Report Type: 
  Country: None (occurrence: None)
  Receive Date: 20101015
  Receipt Date: 20101006
  Transmission Date: 20110411
  Serious: Yes (Hospitalization, Other)
  Sender: FDA-Public Use
  Company Number: ZA-ABBOTT-10R-143-0676844-00

PATIENT
  Age: 1 Day

DRUGS (1)
  1. SURVANTA [Suspect]
     Indication: ACUTE RESPIRATORY DISTRESS SYNDROME
     Dosage: NOT REPORTED (8 ML VIAL)
     Dates: start: 20101002, end: 20101002

REACTIONS (2)
  - ACUTE RESPIRATORY DISTRESS SYNDROME [None]
  - WRONG TECHNIQUE IN DRUG USAGE PROCESS [None]
